FAERS Safety Report 7814760-0 (Version None)
Quarter: 2011Q4

REPORT INFORMATION
  Report Type: 
  Country: None (occurrence: None)
  Receive Date: 20111014
  Receipt Date: 20111003
  Transmission Date: 20120403
  Serious: Yes (Hospitalization)
  Sender: FDA-Public Use
  Company Number: US-JNJFOC-20110807857

PATIENT
  Sex: Male
  Weight: 103 kg

DRUGS (10)
  1. LORTAB [Interacting]
     Indication: PRODUCT USED FOR UNKNOWN INDICATION
     Route: 048
  2. HYDROCHLOROTHIAZIDE [Concomitant]
     Indication: BLOOD PRESSURE
     Route: 048
  3. ASPIRIN [Concomitant]
     Indication: PRODUCT USED FOR UNKNOWN INDICATION
     Route: 048
  4. DILTIAZEM HCL [Concomitant]
     Indication: PRODUCT USED FOR UNKNOWN INDICATION
     Route: 048
  5. LORTAB [Interacting]
     Route: 048
     Dates: start: 20110814, end: 20110814
  6. ACETAMINOPHEN AND HYDROCODONE BITARTRATE [Concomitant]
     Indication: PAIN
     Dosage: 5 MG/500 MG
     Route: 048
  7. PREDNISONE [Suspect]
     Indication: PRODUCT USED FOR UNKNOWN INDICATION
     Route: 048
  8. POTASSIUM CHLORIDE [Concomitant]
     Indication: PRODUCT USED FOR UNKNOWN INDICATION
     Route: 048
  9. LISINOPRIL [Concomitant]
     Indication: BLOOD PRESSURE
     Route: 048
  10. ZYTIGA [Suspect]
     Indication: PROSTATE CANCER
     Dosage: STRENGTH: 250 MG
     Route: 048
     Dates: start: 20110101, end: 20110814

REACTIONS (4)
  - ANGIOEDEMA [None]
  - SWOLLEN TONGUE [None]
  - SWELLING FACE [None]
  - DRUG INTERACTION [None]
